FAERS Safety Report 7970060-X (Version None)
Quarter: 2011Q4

REPORT INFORMATION
  Report Type: 
  Country: None (occurrence: None)
  Receive Date: 20111122
  Receipt Date: 20110621
  Transmission Date: 20120403
  Serious: No
  Sender: FDA-Public Use
  Company Number: PHHY2011US47894

PATIENT
  Age: 49 Year
  Sex: Female

DRUGS (5)
  1. FAMPRIDINE (FAMPRIDINE) [Concomitant]
  2. GEMFIBROZIL [Concomitant]
  3. EFFEXOR [Concomitant]
  4. PROVIGIL [Concomitant]
  5. GILENYA [Suspect]
     Indication: MULTIPLE SCLEROSIS
     Dosage: 0.5 MG, DAILY, ORAL
     Route: 048
     Dates: start: 20110516, end: 20110606

REACTIONS (3)
  - HEADACHE [None]
  - DIARRHOEA [None]
  - FATIGUE [None]
